FAERS Safety Report 5368055-8 (Version None)
Quarter: 2007Q2

REPORT INFORMATION
  Report Type: 
  Country: None (occurrence: None)
  Receive Date: 20070622
  Receipt Date: 20070611
  Transmission Date: 20071010
  Serious: Yes (Other)
  Sender: FDA-Public Use
  Company Number: BR-PFIZER INC-2007049152

PATIENT
  Sex: Female
  Weight: 61 kg

DRUGS (5)
  1. CADUET [Suspect]
     Indication: HYPERTENSION
     Dosage: TEXT:10MG/5MG
     Route: 048
     Dates: start: 20070501, end: 20070605
  2. AMLODIPINE [Suspect]
     Indication: HYPERTENSION
     Route: 048
  3. SELOZOK [Concomitant]
     Route: 048
  4. LOSARTAN POTASSIUM AND HYDROCHLOROTHIAZIDE [Concomitant]
     Route: 048
  5. LOSARTAN [Concomitant]
     Route: 048

REACTIONS (4)
  - BLOOD PRESSURE INCREASED [None]
  - DIZZINESS [None]
  - DYSPNOEA [None]
  - VOMITING [None]
